FAERS Safety Report 5850861-4 (Version None)
Quarter: 2008Q3

REPORT INFORMATION
  Report Type: 
  Country: None (occurrence: None)
  Receive Date: 20080819
  Receipt Date: 20080819
  Transmission Date: 20090109
  Serious: Yes (Hospitalization)
  Sender: FDA-Public Use
  Company Number: None

PATIENT
  Sex: Female
  Weight: 83.9 kg

DRUGS (2)
  1. XELODA [Suspect]
     Dosage: 44100 MG
  2. ELOXATIN [Suspect]
     Dosage: 300 MG

REACTIONS (2)
  - DIARRHOEA [None]
  - SYNCOPE [None]
